FAERS Safety Report 11572842 (Version 1)
Quarter: 2015Q3

REPORT INFORMATION
  Report Type: Spontaneous
  Country: US (occurrence: US)
  Receive Date: 20150929
  Receipt Date: 20150929
  Transmission Date: 20151125
  Serious: Yes (Other)
  Sender: FDA-Public Use
  Company Number: US-BAXTER-2015BAX052877

PATIENT
  Age: 32 Year
  Sex: Female

DRUGS (2)
  1. 1.5% GLYCINE IRRIGATION, USP [Suspect]
     Active Substance: GLYCINE
     Indication: OFF LABEL USE
  2. 1.5% GLYCINE IRRIGATION, USP [Suspect]
     Active Substance: GLYCINE
     Indication: UTERINE IRRIGATION
     Route: 042

REACTIONS (2)
  - Incorrect route of drug administration [Recovered/Resolved]
  - Transurethral resection syndrome [Recovered/Resolved]
